FAERS Safety Report 6929355-0 (Version None)
Quarter: 2010Q3

REPORT INFORMATION
  Report Type: 
  Country: None (occurrence: None)
  Receive Date: 20100818
  Receipt Date: 20100809
  Transmission Date: 20110219
  Serious: Yes (Hospitalization, Other)
  Sender: FDA-Public Use
  Company Number: DE-JNJFOC-20100305921

PATIENT
  Sex: Male

DRUGS (9)
  1. TOPAMAX [Suspect]
     Indication: EPILEPSY
     Dosage: SINCE YEARS
     Route: 048
  2. NORVASC [Concomitant]
     Route: 048
  3. ENALAPRIL MALEATE [Concomitant]
     Route: 048
  4. ESIDRIX [Concomitant]
     Route: 048
  5. GASTROZEPIN [Concomitant]
     Route: 048
  6. PANTOZOL [Concomitant]
     Route: 048
  7. PLAVIX [Concomitant]
     Route: 048
  8. SIRDALUD [Concomitant]
     Route: 048
  9. SPASMO-URGENIN [Concomitant]
     Route: 048

REACTIONS (9)
  - AMNESIA [None]
  - CONVULSION [None]
  - FAECAL INCONTINENCE [None]
  - HEADACHE [None]
  - HYPOTENSION [None]
  - INSOMNIA [None]
  - SPEECH DISORDER [None]
  - SUPRAVENTRICULAR EXTRASYSTOLES [None]
  - SYNCOPE [None]
